FAERS Safety Report 9549600 (Version 8)
Quarter: 2014Q2

REPORT INFORMATION
  Report Type: Report from Study
  Country: MX (occurrence: MX)
  Receive Date: 20130924
  Receipt Date: 20140629
  Transmission Date: 20141212
  Serious: Yes (Death, Life-Threatening, Hospitalization)
  Sender: FDA-Public Use
  Company Number: MX-PFIZER INC-2013272311

PATIENT
  Age: 54 Year
  Sex: Male
  Weight: 58.5 kg

DRUGS (12)
  1. AZULFIDINE [Suspect]
     Indication: RHEUMATOID ARTHRITIS
     Dosage: 1000 MG, 2X/DAY
     Route: 048
     Dates: start: 20120301, end: 20130902
  2. METHOTREXATE SODIUM [Suspect]
     Indication: RHEUMATOID ARTHRITIS
     Dosage: 12.5 MG, WEEKLY
     Route: 048
     Dates: start: 20120301, end: 20130902
  3. PREDNISONE [Suspect]
     Indication: RHEUMATOID ARTHRITIS
     Dosage: 2.5 MG, 2X/DAY
     Route: 048
     Dates: start: 201104, end: 20130902
  4. TOCILIZUMAB [Suspect]
     Indication: RHEUMATOID ARTHRITIS
     Dosage: 8 MG/KG, EVERY 4 WEEKS (DATE OF LAST DOSE PRIOR TO EVENT: 06/AUG/2013)
     Route: 042
     Dates: start: 20121226, end: 20130806
  5. FOLIC ACID [Concomitant]
     Dosage: 5 MG, ALTERNATE DAY
     Route: 048
     Dates: start: 20120301, end: 20130902
  6. NAPROXEN [Concomitant]
     Indication: RHEUMATOID ARTHRITIS
     Dosage: 250 MG, 2X/DAY
     Route: 048
     Dates: start: 20120301, end: 20130902
  7. CALCITRIOL [Concomitant]
     Dosage: 0.25 UG, 1X/DAY
     Route: 048
     Dates: start: 20120301, end: 20130917
  8. SIMVASTATINE [Concomitant]
     Indication: INFARCTION
     Dosage: 40 MG, 1X/DAY
     Route: 048
     Dates: start: 20130218, end: 20130917
  9. AMOXICILLIN SODIUM/CLAVULANATE POTASSIUM [Concomitant]
     Indication: FURUNCLE
     Dosage: 875 MG, 2X/DAY
     Route: 048
     Dates: start: 20130319, end: 20130325
  10. ASPIRINA [Concomitant]
     Indication: INFARCTION
     Dosage: 100 MG, 1X/DAY
     Route: 048
     Dates: start: 20130218, end: 20130917
  11. DICLOXACILLIN [Concomitant]
     Indication: HIDRADENITIS
     Dosage: 1 G, 3X/DAY
     Route: 042
     Dates: start: 20130610, end: 20130617
  12. DICLOXACILLIN [Concomitant]
     Indication: HISTIOCYTIC NECROTISING LYMPHADENITIS

REACTIONS (2)
  - Septic shock [Fatal]
  - Gastroenteritis [Unknown]
